FAERS Safety Report 5406937-9 (Version None)
Quarter: 2007Q3

REPORT INFORMATION
  Report Type: 
  Country: None (occurrence: None)
  Receive Date: 20070807
  Receipt Date: 20070731
  Transmission Date: 20080115
  Serious: Yes (Other)
  Sender: FDA-Public Use
  Company Number: HQWYE312031JUL07

PATIENT
  Age: 68 Year
  Sex: Male

DRUGS (1)
  1. PANTOPRAZOLE SODIUM [Suspect]
     Dosage: DOSE FORM
     Route: 048
     Dates: start: 20020101, end: 20070721

REACTIONS (3)
  - DIARRHOEA [None]
  - PROCTALGIA [None]
  - RECTAL HAEMORRHAGE [None]
